FAERS Safety Report 9750387 (Version 2)
Quarter: 2014Q1

REPORT INFORMATION
  Report Type: Report from Study
  Country: KR (occurrence: KR)
  Receive Date: 20131212
  Receipt Date: 20140116
  Transmission Date: 20141002
  Serious: Yes (Hospitalization)
  Sender: FDA-Public Use
  Company Number: KR-BAYER-2013-148748

PATIENT
  Age: 32 Year
  Sex: Male
  Weight: 55 kg

DRUGS (6)
  1. NEXAVAR [Suspect]
     Indication: HEPATOCELLULAR CARCINOMA
     Dosage: DAILY DOSE 800 MG
     Route: 048
     Dates: start: 20130104, end: 20130121
  2. NEXAVAR [Suspect]
     Indication: HEPATOCELLULAR CARCINOMA
     Dosage: DAILY DOSE 600 MG
     Route: 048
     Dates: start: 20130122, end: 20130213
  3. URSA [Concomitant]
     Dosage: TOTAL DAILY DOSE: ^3 TAB^
     Dates: start: 20121228
  4. PANTOLOC [Concomitant]
     Dosage: TOTAL DAILY DOSE: ^1 TAB^
     Dates: start: 20121229
  5. OXYCODONE [Concomitant]
     Indication: PAIN MANAGEMENT
     Dosage: TOTAL DAILY DOSE: ^4 TAB^
     Dates: start: 20130106
  6. DUROGESIC-TTS [Concomitant]
     Indication: PAIN MANAGEMENT
     Dosage: TOTAL DAILY DOSE: ^25 MCG^
     Dates: start: 20130129

REACTIONS (1)
  - Hypoglycaemia [Recovered/Resolved]
